FAERS Safety Report 8776421 (Version 1)
Quarter: 2012Q4

REPORT INFORMATION
  Report Type: 
  Country: DE (occurrence: DE)
  Receive Date: 20120910
  Receipt Date: 20120910
  Transmission Date: 20130627
  Serious: Yes (Other)
  Sender: FDA-Public Use
  Company Number: PHHY2012DE078155

PATIENT
  Sex: Female

DRUGS (1)
  1. RASILEZ [Suspect]

REACTIONS (1)
  - Systemic lupus erythematosus [Unknown]
